FAERS Safety Report 9098084 (Version 1)
Quarter: 2013Q1

REPORT INFORMATION
  Report Type: Spontaneous
  Country: US (occurrence: US)
  Receive Date: 20130213
  Receipt Date: 20130213
  Transmission Date: 20140127
  Serious: Yes (Other)
  Sender: FDA-Public Use
  Company Number: PHEH2013US003487

PATIENT
  Sex: Male

DRUGS (2)
  1. DIOVAN HCT [Suspect]
     Indication: BLOOD PRESSURE
     Dosage: 1 DF (320 OF VALS AND 12.5 OF HCT, UNK
  2. PRAVASTATIN [Concomitant]

REACTIONS (2)
  - Dementia [Unknown]
  - Prostatic disorder [Unknown]
